FAERS Safety Report 6371896-1 (Version None)
Quarter: 2009Q3

REPORT INFORMATION
  Report Type: 
  Country: None (occurrence: None)
  Receive Date: 20090918
  Receipt Date: 20090918
  Transmission Date: 20100115
  Serious: Yes (Hospitalization)
  Sender: FDA-Public Use
  Company Number: None

PATIENT
  Age: 61 Year
  Sex: Male
  Weight: 87.7257 kg

DRUGS (1)
  1. METOLAZONE [Suspect]
     Indication: OEDEMA
     Dosage: 1 TABLET DAILY FOR 7 DAYS PO
     Route: 048
     Dates: start: 20090911, end: 20090915

REACTIONS (5)
  - BLOOD GLUCOSE INCREASED [None]
  - BLOOD POTASSIUM DECREASED [None]
  - BLOOD PRESSURE DECREASED [None]
  - LOSS OF CONSCIOUSNESS [None]
  - OXYGEN SATURATION DECREASED [None]
